FAERS Safety Report 7719249-5 (Version None)
Quarter: 2011Q3

REPORT INFORMATION
  Report Type: 
  Country: None (occurrence: None)
  Receive Date: 20110830
  Receipt Date: 20110819
  Transmission Date: 20111222
  Serious: Yes (Other)
  Sender: FDA-Public Use
  Company Number: US-BAYER-2011-023504

PATIENT
  Age: 24 Year
  Sex: Female
  Weight: 99.773 kg

DRUGS (11)
  1. YASMIN [Suspect]
     Indication: PREMENSTRUAL SYNDROME
  2. TRIAM CO [Concomitant]
     Indication: WEIGHT CONTROL
     Dosage: 37.5 UNK, UNK
     Route: 048
     Dates: start: 20041201, end: 20061101
  3. WELLBUTRIN XL [Concomitant]
     Dosage: 300 MG, UNK
  4. DEPAKOTE [Concomitant]
     Indication: DEPRESSION
     Dosage: 1000 MG, UNK
     Route: 048
  5. ADIPEX [Concomitant]
     Indication: WEIGHT DECREASED
     Dosage: 37.5 MG, UNK
     Route: 048
     Dates: start: 20051103
  6. YASMIN [Suspect]
     Indication: CONTRACEPTION
     Dosage: UNK
     Route: 048
     Dates: start: 20060201, end: 20061201
  7. DYAZIDE [Concomitant]
  8. PROZAC [Concomitant]
     Dosage: 20 MG, QD
  9. IBUPROFEN (ADVIL) [Concomitant]
     Dosage: 200 MG, PRN
     Route: 048
  10. YAZ [Suspect]
  11. LORTAB [Concomitant]
     Dosage: 5 MG, PRN

REACTIONS (10)
  - CHOLECYSTITIS CHRONIC [None]
  - PAIN [None]
  - CONSTIPATION [None]
  - DIARRHOEA [None]
  - INJURY [None]
  - FLATULENCE [None]
  - GALLBLADDER DISORDER [None]
  - SCAR [None]
  - ABDOMINAL DISTENSION [None]
  - DYSPEPSIA [None]
